FAERS Safety Report 12190882 (Version 1)
Quarter: 2016Q1

REPORT INFORMATION
  Report Type: Spontaneous
  Country: US (occurrence: None)
  Receive Date: 20160317
  Receipt Date: 20160317
  Transmission Date: 20160526
  Serious: Yes (Hospitalization)
  Sender: FDA-Public Use
  Company Number: None

PATIENT
  Age: 76 Year
  Sex: Female

DRUGS (1)
  1. ADCIRCA [Suspect]
     Active Substance: TADALAFIL
     Indication: ASCARIASIS
     Dosage: 20MG 2 TABLETS DAILY ORAL
     Route: 048
     Dates: start: 20151123

REACTIONS (2)
  - Atrioventricular block [None]
  - Dyspnoea [None]

NARRATIVE: CASE EVENT DATE: 20160315
